FAERS Safety Report 5669120-8 (Version None)
Quarter: 2008Q1

REPORT INFORMATION
  Report Type: 
  Country: None (occurrence: None)
  Receive Date: 20080317
  Receipt Date: 20080303
  Transmission Date: 20080703
  Serious: Yes (Hospitalization)
  Sender: FDA-Public Use
  Company Number: DE-AMGEN-US268321

PATIENT
  Age: 70 Year
  Sex: Female

DRUGS (2)
  1. ENBREL [Suspect]
     Indication: POLYARTHRITIS
     Route: 058
     Dates: start: 20040601
  2. LANTAREL [Suspect]
     Indication: POLYARTHRITIS
     Dosage: 10 - 15 MG ONCE WEEKLY
     Route: 065
     Dates: start: 20040101

REACTIONS (2)
  - COLON CANCER [None]
  - HYPERSENSITIVITY [None]
